FAERS Safety Report 8219059-9 (Version None)
Quarter: 2012Q1

REPORT INFORMATION
  Report Type: 
  Country: None (occurrence: None)
  Receive Date: 20120319
  Receipt Date: 20120308
  Transmission Date: 20120608
  Serious: Yes (Death, Life-Threatening, Hospitalization)
  Sender: FDA-Public Use
  Company Number: JP-AMGEN-JPNCT2012016992

PATIENT
  Age: 64 Year
  Sex: Male
  Weight: 47 kg

DRUGS (7)
  1. HIRUDOID [Concomitant]
     Dosage: UNK
     Route: 062
     Dates: end: 20120202
  2. PANITUMUMAB [Suspect]
     Indication: COLORECTAL CANCER
     Dosage: 282 MG, Q2WK
     Route: 041
     Dates: start: 20111202, end: 20120126
  3. MUCOSTA [Concomitant]
     Indication: PROPHYLAXIS
     Dosage: 100 MG, TID
     Route: 048
     Dates: start: 20110715, end: 20120202
  4. OXYCONTIN [Concomitant]
     Indication: PAIN
     Dosage: 40 MG, BID
     Route: 048
     Dates: end: 20120202
  5. LOXONIN [Concomitant]
     Indication: PAIN
     Dosage: 60 MG, TID
     Route: 048
     Dates: end: 20120202
  6. OXINORM [Concomitant]
     Indication: PAIN
     Dosage: 10 MG, UNK
     Route: 048
     Dates: end: 20120202
  7. LOPERAMIDE [Concomitant]
     Dosage: 1 MG, UNK
     Route: 048
     Dates: start: 20110729, end: 20120202

REACTIONS (2)
  - INTERSTITIAL LUNG DISEASE [None]
  - COLORECTAL CANCER [None]
